FAERS Safety Report 26102137 (Version 1)
Quarter: 2025Q4

REPORT INFORMATION
  Report Type: Report from Study
  Country: CA (occurrence: CA)
  Receive Date: 20251128
  Receipt Date: 20251128
  Transmission Date: 20260118
  Serious: Yes (Hospitalization)
  Sender: TEVA
  Company Number: CA-TEVA-VS-3385522

PATIENT
  Age: 37 Year
  Sex: Female

DRUGS (5)
  1. AJOVY [Suspect]
     Active Substance: FREMANEZUMAB-VFRM
     Indication: Migraine prophylaxis
     Route: 058
     Dates: start: 20250915
  2. AMITRIPTYLINE [Concomitant]
     Active Substance: AMITRIPTYLINE
     Indication: Product used for unknown indication
     Dosage: ACTIVE
  3. GABAPENTIN [Concomitant]
     Active Substance: GABAPENTIN
     Indication: Product used for unknown indication
     Dosage: DISCONTINUED
  4. PROPRANOLOL [Concomitant]
     Active Substance: PROPRANOLOL HYDROCHLORIDE
     Indication: Product used for unknown indication
     Dosage: DISCONTINUED
  5. ASPIRIN [Concomitant]
     Active Substance: ASPIRIN
     Indication: Coagulopathy
     Dosage: DAILY
     Route: 065

REACTIONS (21)
  - Transient ischaemic attack [Unknown]
  - Rash [Not Recovered/Not Resolved]
  - Erythema [Unknown]
  - Paraesthesia [Unknown]
  - Drug effect less than expected [Unknown]
  - Blister [Not Recovered/Not Resolved]
  - Dysarthria [Unknown]
  - Dry skin [Not Recovered/Not Resolved]
  - Poor peripheral circulation [Unknown]
  - Malaise [Unknown]
  - Fatigue [Unknown]
  - Dyspepsia [Unknown]
  - Paraesthesia oral [Unknown]
  - Nausea [Unknown]
  - Migraine with aura [Unknown]
  - Musculoskeletal discomfort [Unknown]
  - Muscular weakness [Unknown]
  - Blue toe syndrome [Unknown]
  - Paraesthesia [Unknown]
  - Coagulopathy [Unknown]
  - Migraine [Unknown]

NARRATIVE: CASE EVENT DATE: 20250101
